FAERS Safety Report 5262641-1 (Version None)
Quarter: 2007Q1

REPORT INFORMATION
  Report Type: 
  Country: None (occurrence: None)
  Receive Date: 20070307
  Receipt Date: 20070305
  Transmission Date: 20070707
  Serious: Yes (Life-Threatening, Hospitalization)
  Sender: FDA-Public Use
  Company Number: TCI2007A00256

PATIENT
  Age: 68 Year
  Sex: Male

DRUGS (6)
  1. LANSOPRAZOLE [Suspect]
     Indication: PROPHYLAXIS AGAINST GASTROINTESTINAL ULCER
     Dosage: PER ORAL
     Route: 048
     Dates: start: 20060825, end: 20060913
  2. PHENOBARBITAL TAB [Suspect]
     Indication: CONVULSION PROPHYLAXIS
     Dosage: 90 MG (30 MG, 3 IN 1 D), PER ORAL
     Route: 048
     Dates: start: 20060824, end: 20060913
  3. TARGOCID [Suspect]
     Indication: DEVICE RELATED INFECTION
     Dosage: 400 MG (400 MG, 1 IN 1 D), INTRAVENOUS DRIP
     Route: 041
     Dates: start: 20060830, end: 20060913
  4. TARGOCID [Suspect]
     Indication: STAPHYLOCOCCAL INFECTION
     Dosage: 400 MG (400 MG, 1 IN 1 D), INTRAVENOUS DRIP
     Route: 041
     Dates: start: 20060830, end: 20060913
  5. LOXONIN (LOXOPROFEN SODIUM) (TABLETS) [Concomitant]
  6. VASOLAN (VERAPAMIL HYDROCHLORIDE) (TABLETS) [Concomitant]

REACTIONS (10)
  - ACUTE RESPIRATORY DISTRESS SYNDROME [None]
  - EOSINOPHIL COUNT INCREASED [None]
  - EOSINOPHIL PERCENTAGE INCREASED [None]
  - GRANULOCYTOPENIA [None]
  - INTERSTITIAL LUNG DISEASE [None]
  - LYMPHOCYTE STIMULATION TEST POSITIVE [None]
  - PLEURAL EFFUSION [None]
  - PYREXIA [None]
  - RESPIRATORY FAILURE [None]
  - STAPHYLOCOCCAL INFECTION [None]
